FAERS Safety Report 5573244-3 (Version None)
Quarter: 2007Q4

REPORT INFORMATION
  Report Type: 
  Country: None (occurrence: None)
  Receive Date: 20071220
  Receipt Date: 20071211
  Transmission Date: 20080405
  Serious: Yes (Hospitalization)
  Sender: FDA-Public Use
  Company Number: 2007-05693

PATIENT
  Age: 21 Year
  Sex: Female

DRUGS (2)
  1. LEVORA 0.15/30-28 [Suspect]
     Indication: CONTRACEPTION
     Dosage: 2 TABLET, 12HRS AFTER 1ST DOSE, ORAL; 2 TABLET, SINGLE, ORAL
     Route: 048
     Dates: start: 20070101, end: 20070101
  2. LEVORA 0.15/30-28 [Suspect]
     Indication: CONTRACEPTION
     Dosage: 2 TABLET, 12HRS AFTER 1ST DOSE, ORAL; 2 TABLET, SINGLE, ORAL
     Route: 048
     Dates: start: 20070101, end: 20070101

REACTIONS (2)
  - DRUG EXPOSURE DURING PREGNANCY [None]
  - ECTOPIC PREGNANCY [None]
